FAERS Safety Report 4307150-9 (Version None)
Quarter: 2004Q1

REPORT INFORMATION
  Report Type: 
  Country: None (occurrence: None)
  Receive Date: 20040227
  Receipt Date: 20040219
  Transmission Date: 20041129
  Serious: Yes (Death, Hospitalization, Other)
  Sender: FDA-Public Use
  Company Number: PHHO2004US02711

PATIENT
  Age: 69 Year
  Sex: Female

DRUGS (15)
  1. ZOLEDRONATE [Suspect]
     Indication: METASTASES TO BONE
     Dosage: 4 MG, EVERY 6 MONTHS
     Route: 042
     Dates: start: 20030821
  2. FEMARA [Suspect]
     Indication: BREAST CANCER
     Dosage: 2.5 MG, QD
     Route: 048
     Dates: start: 20030821, end: 20040212
  3. DIGOXIN [Concomitant]
     Dosage: .125 UNK, QD
  4. LEVOTHYROXINE SODIUM [Concomitant]
     Dosage: .125 UNK, QD
  5. BENAZEPRIL HCL [Concomitant]
     Dosage: 10 UNK, QD
  6. K-DUR 10 [Concomitant]
     Dosage: 20 UNK, QD
  7. WARFARIN SODIUM [Concomitant]
  8. PROPRANOLOL [Concomitant]
     Dosage: 20 UNK, TID
  9. LASIX [Concomitant]
     Dosage: 40 MG, QD
  10. CODEINE [Concomitant]
  11. LEVAQUIN [Concomitant]
  12. PEPCID [Concomitant]
  13. DUONEB [Concomitant]
  14. LOVENOX [Concomitant]
  15. GLIPIZIDE [Concomitant]

REACTIONS (22)
  - ACUTE MYOCARDIAL INFARCTION [None]
  - ANAEMIA [None]
  - ASTHENIA [None]
  - ATRIAL FIBRILLATION [None]
  - BINOCULAR EYE MOVEMENT DISORDER [None]
  - CLONIC CONVULSION [None]
  - COMPUTERISED TOMOGRAM ABNORMAL [None]
  - CONTUSION [None]
  - DEPRESSION [None]
  - DISORIENTATION [None]
  - ELECTROCARDIOGRAM POOR R-WAVE PROGRESSION [None]
  - ELECTROENCEPHALOGRAM ABNORMAL [None]
  - EYE MOVEMENT DISORDER [None]
  - FALL [None]
  - HEMIPARESIS [None]
  - HYPOTENSION [None]
  - LETHARGY [None]
  - SUBDURAL HYGROMA [None]
  - SYNCOPE [None]
  - UNRESPONSIVE TO PAIN STIMULI [None]
  - URINARY TRACT INFECTION [None]
  - VASCULAR CALCIFICATION [None]
